FAERS Safety Report 23237367 (Version 2)
Quarter: 2023Q4

REPORT INFORMATION
  Report Type: Spontaneous
  Country: JP (occurrence: JP)
  Receive Date: 20231128
  Receipt Date: 20231220
  Transmission Date: 20240110
  Serious: Yes (Death, Hospitalization, Other)
  Sender: FDA-Public Use
  Company Number: JP-BAYER-2023A167357

PATIENT
  Age: 72 Year
  Sex: Male
  Weight: 68.85 kg

DRUGS (10)
  1. NEXAVAR [Suspect]
     Active Substance: SORAFENIB
     Indication: Follicular thyroid cancer
     Dosage: DAILY DOSE 800 MG
     Route: 048
     Dates: start: 20230509, end: 20230526
  2. NEXAVAR [Suspect]
     Active Substance: SORAFENIB
     Indication: Metastases to lung
  3. NEXAVAR [Suspect]
     Active Substance: SORAFENIB
     Indication: Metastases to bone
  4. LEVOTHYROXINE SODIUM [Concomitant]
     Active Substance: LEVOTHYROXINE SODIUM
     Indication: Hypothyroidism
     Dosage: DAILY DOSE 150 ?G
     Route: 048
     Dates: start: 20191221
  5. LEVOTHYROXINE SODIUM [Concomitant]
     Active Substance: LEVOTHYROXINE SODIUM
     Indication: Hypothyroidism
     Dosage: DAILY DOSE 12.5 ?G
     Route: 048
     Dates: start: 20191221
  6. SPIRONOLACTONE [Concomitant]
     Active Substance: SPIRONOLACTONE
     Indication: Hypertension
     Dosage: DAILY DOSE 25 MG
     Route: 048
  7. BISOPROLOL FUMARATE [Concomitant]
     Active Substance: BISOPROLOL FUMARATE
     Indication: Hypertension
     Dosage: DAILY DOSE 3.75 MG
     Route: 048
  8. POTASSIUM ASPARTATE [Concomitant]
     Active Substance: POTASSIUM ASPARTATE
     Indication: Hypertension
     Dosage: DAILY DOSE 300 MG
     Route: 048
  9. OLMESARTAN [Concomitant]
     Active Substance: OLMESARTAN
     Indication: Hypertension
     Dosage: DAILY DOSE 20 MG
     Route: 048
  10. EDOXABAN TOSYLATE [Concomitant]
     Active Substance: EDOXABAN TOSYLATE
     Indication: Atrial fibrillation
     Dosage: DAILY DOSE 30 MG
     Route: 048

REACTIONS (14)
  - Cardiac dysfunction [Fatal]
  - Cardiomyopathy [Fatal]
  - Cardiac failure acute [Fatal]
  - Cardio-respiratory arrest [None]
  - Shock [Not Recovered/Not Resolved]
  - General physical health deterioration [Not Recovered/Not Resolved]
  - Hepatic function abnormal [Not Recovered/Not Resolved]
  - Diarrhoea [Recovering/Resolving]
  - Decreased appetite [None]
  - Nausea [None]
  - Pyrexia [None]
  - Dyspnoea [None]
  - Red blood cell count increased [None]
  - Haemoglobin increased [None]

NARRATIVE: CASE EVENT DATE: 20230509
